FAERS Safety Report 9449769 (Version 2)
Quarter: 2013Q3

REPORT INFORMATION
  Report Type: Spontaneous
  Country: US (occurrence: US)
  Receive Date: 20130809
  Receipt Date: 20130920
  Transmission Date: 20140515
  Serious: Yes (Hospitalization, Other)
  Sender: FDA-Public Use
  Company Number: US-009507513-0805USA01251

PATIENT
  Sex: Female
  Weight: 57.14 kg

DRUGS (1)
  1. FOSAMAX [Suspect]
     Indication: OSTEOPENIA
     Dosage: 70 MG, QW
     Route: 048
     Dates: start: 2003, end: 2006

REACTIONS (14)
  - Vascular graft [Unknown]
  - Limb injury [Unknown]
  - Post procedural haemorrhage [Unknown]
  - Angiopathy [Unknown]
  - Osteonecrosis of jaw [Unknown]
  - Dental caries [Unknown]
  - Joint injury [Unknown]
  - Blood cholesterol increased [Not Recovered/Not Resolved]
  - Meniscus removal [Unknown]
  - Infection [Unknown]
  - Periarthritis [Unknown]
  - Rotator cuff syndrome [Unknown]
  - Osteoarthritis [Unknown]
  - Gastritis [Unknown]
